FAERS Safety Report 9413254 (Version 2)
Quarter: 2013Q3

REPORT INFORMATION
  Report Type: Spontaneous
  Country: US (occurrence: None)
  Receive Date: 20130617
  Receipt Date: 20130815
  Transmission Date: 20140515
  Serious: Yes (Hospitalization, Other)
  Sender: FDA-Public Use
  Company Number: ADR-2013-00965

PATIENT
  Age: 62 Year
  Sex: Male

DRUGS (1)
  1. BACLOFEN INTRATHECAL [Suspect]
     Indication: MUSCLE SPASTICITY

REACTIONS (7)
  - Decubitus ulcer [None]
  - Malaise [None]
  - Wound complication [None]
  - Malaise [None]
  - Decubitus ulcer [None]
  - Sepsis [None]
  - Movement disorder [None]
